FAERS Safety Report 8392667-0 (Version None)
Quarter: 2012Q2

REPORT INFORMATION
  Report Type: 
  Country: None (occurrence: None)
  Receive Date: 20120529
  Receipt Date: 20120514
  Transmission Date: 20120825
  Serious: Yes (Hospitalization, Other)
  Sender: FDA-Public Use
  Company Number: US-JUTA GMBH-2012-09020

PATIENT
  Age: 79 Year
  Sex: Female

DRUGS (3)
  1. ETHYL ALCOHOL [Suspect]
     Indication: FEELING OF RELAXATION
     Dosage: UNK
     Route: 048
  2. METOPROLOL TARTRATE [Suspect]
     Indication: HYPERTENSION
     Dosage: UNK
     Route: 065
  3. GLYBURIDE [Suspect]
     Indication: DIABETES MELLITUS
     Dosage: 150 MG, QAM
     Route: 065

REACTIONS (11)
  - DRUG INTERACTION [None]
  - TREATMENT NONCOMPLIANCE [None]
  - ACTIVITIES OF DAILY LIVING IMPAIRED [None]
  - SLEEP DISORDER [None]
  - LOSS OF CONSCIOUSNESS [None]
  - BLOOD PRESSURE INCREASED [None]
  - ALCOHOL USE [None]
  - BLOOD GLUCOSE INCREASED [None]
  - DECREASED APPETITE [None]
  - WEIGHT DECREASED [None]
  - ANXIETY [None]
